FAERS Safety Report 15783541 (Version 2)
Quarter: 2019Q1

REPORT INFORMATION
  Report Type: Spontaneous
  Country: US (occurrence: US)
  Receive Date: 20190102
  Receipt Date: 20190213
  Transmission Date: 20190417
  Serious: Yes (Other)
  Sender: FDA-Public Use
  Company Number: US-BAYER-2018-246138

PATIENT
  Age: 34 Year
  Sex: Female
  Weight: 70.3 kg

DRUGS (7)
  1. POVIDONE-IODINE. [Concomitant]
     Active Substance: POVIDONE-IODINE
  2. ZADITOR [KETOTIFEN] [Concomitant]
  3. ADDERALL [Concomitant]
     Active Substance: AMPHETAMINE ASPARTATE\AMPHETAMINE SULFATE\DEXTROAMPHETAMINE SACCHARATE\DEXTROAMPHETAMINE SULFATE
     Dosage: 30 MG
     Route: 048
  4. NICOTINE TRANSDERMAL SYSTEM [Concomitant]
     Active Substance: NICOTINE
     Dosage: 21 MG/24HR, ONCE
  5. MIRENA [Suspect]
     Active Substance: LEVONORGESTREL
     Indication: CONTRACEPTION
     Dosage: 20 MCG/24HR, CONT
     Route: 015
     Dates: start: 20150818, end: 20190116
  6. MIRENA [Suspect]
     Active Substance: LEVONORGESTREL
     Indication: CONTRACEPTION
  7. FLONASE ALLERGY RELIEF [Concomitant]
     Active Substance: FLUTICASONE PROPIONATE

REACTIONS (13)
  - Sleep disorder [None]
  - Back pain [None]
  - Genital haemorrhage [None]
  - Abdominal pain lower [None]
  - Menstrual disorder [None]
  - Bacterial vaginosis [None]
  - Adnexa uteri pain [None]
  - Somnolence [None]
  - Rosacea [None]
  - Uterine leiomyoma [None]
  - Pelvic pain [None]
  - Fibromyalgia [None]
  - Vaginal discharge [Recovered/Resolved]
